FAERS Safety Report 19498092 (Version 1)
Quarter: 2021Q3

REPORT INFORMATION
  Report Type: Spontaneous
  Country: PH (occurrence: PH)
  Receive Date: 20210706
  Receipt Date: 20210706
  Transmission Date: 20211014
  Serious: Yes (Death)
  Sender: FDA-Public Use
  Company Number: PH-PFIZER INC-2021803724

PATIENT
  Sex: Female

DRUGS (1)
  1. IBRANCE [Suspect]
     Active Substance: PALBOCICLIB
     Dosage: UNK

REACTIONS (1)
  - Death [Fatal]
